FAERS Safety Report 14726838 (Version 3)
Quarter: 2018Q2

REPORT INFORMATION
  Report Type: Spontaneous
  Country: JP (occurrence: JP)
  Receive Date: 20180406
  Receipt Date: 20180503
  Transmission Date: 20180711
  Serious: Yes (Other)
  Sender: FDA-Public Use
  Company Number: JP-ACCORD-065373

PATIENT
  Age: 41 Year
  Sex: Female

DRUGS (4)
  1. PREDNISOLONE. [Concomitant]
     Active Substance: PREDNISOLONE
     Indication: RHEUMATOID ARTHRITIS
  2. SULFASALAZINE. [Concomitant]
     Active Substance: SULFASALAZINE
     Indication: RHEUMATOID ARTHRITIS
  3. MYCOPHENOLIC ACID. [Suspect]
     Active Substance: MYCOPHENOLIC ACID
     Indication: IMMUNE TOLERANCE INDUCTION
  4. MIZORIBINE [Suspect]
     Active Substance: MIZORIBINE
     Indication: PRODUCT USED FOR UNKNOWN INDICATION

REACTIONS (3)
  - Paradoxical drug reaction [Recovering/Resolving]
  - Immune reconstitution inflammatory syndrome [Recovered/Resolved]
  - Rheumatoid arthritis [Recovering/Resolving]
